FAERS Safety Report 9599550 (Version 2)
Quarter: 2013Q4

REPORT INFORMATION
  Report Type: Spontaneous
  Country: US (occurrence: US)
  Receive Date: 20131004
  Receipt Date: 20131004
  Transmission Date: 20140711
  Serious: No
  Sender: FDA-Public Use
  Company Number: US-AMGEN-USASP2013023373

PATIENT
  Age: 57 Year
  Sex: Female
  Weight: 69.39 kg

DRUGS (4)
  1. ENBREL [Suspect]
     Indication: PSORIASIS
     Dosage: 50 MG, 2 TIMES/WK
     Dates: start: 20130306
  2. BONIVA [Concomitant]
     Dosage: 150 MG, QD
     Route: 048
     Dates: start: 20130410
  3. ESTRADIOL [Concomitant]
     Dosage: PEASIZED QD
     Route: 061
     Dates: start: 20121107
  4. LOSARTAN POTASSIUM [Concomitant]
     Dosage: 25 MG, QD
     Route: 048
     Dates: start: 20120830

REACTIONS (4)
  - Wrong technique in drug usage process [Not Recovered/Not Resolved]
  - Nasal congestion [Not Recovered/Not Resolved]
  - Sinus congestion [Not Recovered/Not Resolved]
  - Injection site bruising [Recovered/Resolved]
